FAERS Safety Report 9443307 (Version 1)
Quarter: 2013Q3

REPORT INFORMATION
  Report Type: Spontaneous
  Country: US (occurrence: US)
  Receive Date: 20130806
  Receipt Date: 20130806
  Transmission Date: 20140515
  Serious: No
  Sender: FDA-Public Use
  Company Number: US-BAYER-2013-094642

PATIENT
  Age: 35 Year
  Sex: Male
  Weight: 126.98 kg

DRUGS (2)
  1. MAGNEVIST [Suspect]
     Indication: ARTHRITIS BACTERIAL
     Dosage: 12 ML, ONCE
     Route: 042
     Dates: start: 20130801, end: 20130801
  2. MAGNEVIST [Suspect]
     Indication: NUCLEAR MAGNETIC RESONANCE IMAGING

REACTIONS (1)
  - Urticaria [None]
